FAERS Safety Report 20345263 (Version 1)
Quarter: 2022Q1

REPORT INFORMATION
  Report Type: Spontaneous
  Country: US (occurrence: None)
  Receive Date: 20220114
  Receipt Date: 20220114
  Transmission Date: 20220423
  Serious: No
  Sender: FDA-Public Use
  Company Number: None

PATIENT
  Age: 67 Year
  Sex: Female

DRUGS (1)
  1. CAPECITABINE [Suspect]
     Active Substance: CAPECITABINE
     Indication: Colon cancer
     Dosage: FREQUENCY : TWICE A DAY;?
     Route: 048
     Dates: start: 202111

REACTIONS (7)
  - Weight decreased [None]
  - Asthenia [None]
  - Nausea [None]
  - Vomiting [None]
  - Fatigue [None]
  - Dehydration [None]
  - Therapy interrupted [None]

NARRATIVE: CASE EVENT DATE: 20211223
